FAERS Safety Report 7323941-4 (Version None)
Quarter: 2011Q1

REPORT INFORMATION
  Report Type: 
  Country: None (occurrence: None)
  Receive Date: 20110301
  Receipt Date: 20110222
  Transmission Date: 20110831
  Serious: Yes (Other)
  Sender: FDA-Public Use
  Company Number: B0697859A

PATIENT
  Sex: Male
  Weight: 27 kg

DRUGS (5)
  1. CALONAL [Concomitant]
  2. MUCODYNE [Concomitant]
     Route: 048
  3. BIOFERMIN [Concomitant]
     Route: 048
  4. RELENZA [Suspect]
     Indication: INFLUENZA
     Dosage: 20MG PER DAY
     Route: 055
     Dates: start: 20110201
  5. MEPTIN [Concomitant]
     Route: 048

REACTIONS (4)
  - ABNORMAL BEHAVIOUR [None]
  - HALLUCINATION [None]
  - RESTLESSNESS [None]
  - HYPERACUSIS [None]
